FAERS Safety Report 5651224-7 (Version None)
Quarter: 2008Q1

REPORT INFORMATION
  Report Type: 
  Country: None (occurrence: None)
  Receive Date: 20080305
  Receipt Date: 20080222
  Transmission Date: 20080703
  Serious: Yes (Hospitalization)
  Sender: FDA-Public Use
  Company Number: JP-ROCHE-548425

PATIENT
  Age: 64 Year
  Sex: Male
  Weight: 62 kg

DRUGS (4)
  1. PEGASYS [Suspect]
     Route: 058
     Dates: start: 20080213, end: 20080213
  2. POLARAMINE [Suspect]
     Route: 048
     Dates: start: 20080213
  3. SOLU-MEDROL [Suspect]
     Route: 041
     Dates: start: 20080213
  4. NEO-MINOPHAGEN C [Suspect]
     Dosage: FORM:INJECTABLE (NOS).
     Route: 050
     Dates: start: 20080213

REACTIONS (2)
  - PRURITUS [None]
  - RENAL FAILURE ACUTE [None]
